FAERS Safety Report 8105330-8 (Version None)
Quarter: 2012Q1

REPORT INFORMATION
  Report Type: 
  Country: None (occurrence: None)
  Receive Date: 20120201
  Receipt Date: 20120120
  Transmission Date: 20120608
  Serious: Yes (Other)
  Sender: FDA-Public Use
  Company Number: PHEH2012US002126

PATIENT
  Sex: Female

DRUGS (2)
  1. GLEEVEC [Suspect]
     Dosage: 300 MG, UNK
  2. GLEEVEC [Suspect]
     Indication: NEOPLASM MALIGNANT
     Dosage: 400 MG, DAILY
     Route: 048

REACTIONS (4)
  - LIVER DISORDER [None]
  - ACNE [None]
  - EYE SWELLING [None]
  - CARDIAC FAILURE CONGESTIVE [None]
